FAERS Safety Report 6409837-0 (Version None)
Quarter: 2009Q4

REPORT INFORMATION
  Report Type: 
  Country: None (occurrence: None)
  Receive Date: 20091022
  Receipt Date: 20091015
  Transmission Date: 20100525
  Serious: Yes (Hospitalization)
  Sender: FDA-Public Use
  Company Number: BR-ABBOTT-09P-020-0603136-00

PATIENT
  Sex: Female
  Weight: 79 kg

DRUGS (14)
  1. HUMIRA [Suspect]
     Indication: RHEUMATOID ARTHRITIS
     Route: 058
     Dates: start: 20090403, end: 20090601
  2. INFLIXIMAB [Suspect]
     Indication: RHEUMATOID ARTHRITIS
     Route: 042
     Dates: start: 20080912
  3. ETANERCEPT [Suspect]
     Indication: RHEUMATOID ARTHRITIS
  4. TOCILIZUMAB [Suspect]
     Indication: RHEUMATOID ARTHRITIS
  5. CHLOROQUINE/PREDNISONEMELOXICAM/DIPYRONE/INDIAN NUT/FAMOTIDINE [Concomitant]
     Indication: RHEUMATOID ARTHRITIS
     Dosage: 40 MG/3.75 MG/250 MG/25 MG/10 MG
     Route: 048
  6. VITAMIN (VITAGRAM MASTER) [Concomitant]
     Indication: VITAMIN SUPPLEMENTATION
     Route: 048
  7. KAVA [Concomitant]
     Indication: ANXIETY
     Route: 048
  8. AMYTRIPTILINE [Concomitant]
     Indication: SLEEP DISORDER THERAPY
     Route: 048
  9. TYLEX [Concomitant]
     Indication: PAIN
     Route: 048
  10. DIPYRONE [Concomitant]
     Indication: PAIN
     Route: 048
  11. ULTRACET [Concomitant]
     Indication: PAIN
     Route: 048
  12. TRAMADOL HYDROCHLORIDE [Concomitant]
     Indication: PAIN
     Route: 048
  13. PARACETAMOL [Concomitant]
     Indication: PAIN
     Route: 048
  14. ETORICOXIB [Concomitant]
     Indication: PAIN
     Route: 048

REACTIONS (10)
  - ARTHRITIS [None]
  - BACK PAIN [None]
  - CONDITION AGGRAVATED [None]
  - DRUG INEFFECTIVE [None]
  - HEADACHE [None]
  - HYPERSENSITIVITY [None]
  - MALAISE [None]
  - MUSCLE RIGIDITY [None]
  - NECK PAIN [None]
  - PAIN [None]
